FAERS Safety Report 12564072 (Version 1)
Quarter: 2016Q3

REPORT INFORMATION
  Report Type: Spontaneous
  Country: US (occurrence: None)
  Receive Date: 20160715
  Receipt Date: 20160715
  Transmission Date: 20161109
  Serious: Yes (Life-Threatening)
  Sender: FDA-Public Use
  Company Number: None

PATIENT
  Age: 59 Year
  Sex: Female
  Weight: 57.61 kg

DRUGS (6)
  1. BILIARY DRAIN [Concomitant]
  2. MULTI VITAMIN [Concomitant]
     Active Substance: VITAMINS
  3. HUMIRA [Suspect]
     Active Substance: ADALIMUMAB
     Indication: RHEUMATOID ARTHRITIS
     Dosage: GIVEN INTO/UNDER THE SKIN
     Dates: end: 20151008
  4. CIPROFLOXACIN. [Concomitant]
     Active Substance: CIPROFLOXACIN
  5. RANITIDINE. [Concomitant]
     Active Substance: RANITIDINE
  6. URSODIOL. [Concomitant]
     Active Substance: URSODIOL

REACTIONS (1)
  - Cholangiocarcinoma [None]

NARRATIVE: CASE EVENT DATE: 20151008
